FAERS Safety Report 5202527-1 (Version None)
Quarter: 2007Q1

REPORT INFORMATION
  Report Type: 
  Country: None (occurrence: None)
  Receive Date: 20070109
  Receipt Date: 20061211
  Transmission Date: 20070707
  Serious: Yes (Death, Hospitalization, Other)
  Sender: FDA-Public Use
  Company Number: US-PFIZER INC-2006119342

PATIENT
  Sex: Female
  Weight: 63.5 kg

DRUGS (3)
  1. BEXTRA [Suspect]
     Indication: BACK PAIN
     Route: 048
     Dates: start: 20040629, end: 20050109
  2. BEXTRA [Suspect]
     Indication: HIP FRACTURE
  3. BEXTRA [Suspect]
     Indication: ARTHRITIS

REACTIONS (15)
  - AMNESIA [None]
  - CARDIAC FAILURE CONGESTIVE [None]
  - CEREBROVASCULAR ACCIDENT [None]
  - DEMENTIA ALZHEIMER'S TYPE [None]
  - DIARRHOEA [None]
  - FATIGUE [None]
  - HEART RATE INCREASED [None]
  - HYPERTENSION [None]
  - INSOMNIA [None]
  - MYOCARDIAL INFARCTION [None]
  - PARKINSON'S DISEASE [None]
  - PRURITUS [None]
  - RASH [None]
  - RENAL FAILURE [None]
  - SEPSIS [None]
